FAERS Safety Report 13886988 (Version 1)
Quarter: 2017Q3

REPORT INFORMATION
  Report Type: Spontaneous
  Country: US (occurrence: US)
  Receive Date: 20170821
  Receipt Date: 20170821
  Transmission Date: 20171127
  Serious: No
  Sender: FDA-Public Use
  Company Number: US-ROCHE-1005023

PATIENT
  Age: 78 Year
  Sex: Female
  Weight: 70.37 kg

DRUGS (10)
  1. PRAVACHOL [Concomitant]
     Active Substance: PRAVASTATIN SODIUM
  2. SYNTHROID [Concomitant]
     Active Substance: LEVOTHYROXINE SODIUM
  3. FOLINIC ACID [Concomitant]
     Active Substance: LEUCOVORIN
  4. ACTEMRA [Suspect]
     Active Substance: TOCILIZUMAB
     Indication: RHEUMATOID ARTHRITIS
     Dosage: 3 INFUSIONS
     Route: 042
     Dates: end: 20110403
  5. ATENOLOL. [Concomitant]
     Active Substance: ATENOLOL
  6. METHOTREXATE. [Concomitant]
     Active Substance: METHOTREXATE
  7. VICODIN [Concomitant]
     Active Substance: ACETAMINOPHEN\HYDROCODONE BITARTRATE
  8. LOPID [Concomitant]
     Active Substance: GEMFIBROZIL
  9. PREDNISONE. [Concomitant]
     Active Substance: PREDNISONE
  10. HYDROCHLOROTHIAZIDE. [Concomitant]
     Active Substance: HYDROCHLOROTHIAZIDE

REACTIONS (3)
  - Haemoglobin decreased [Recovered/Resolved]
  - Gastric ulcer [Recovered/Resolved]
  - Red blood cell count decreased [Recovered/Resolved]

NARRATIVE: CASE EVENT DATE: 20110502
